FAERS Safety Report 13715640 (Version 2)
Quarter: 2017Q3

REPORT INFORMATION
  Report Type: Spontaneous
  Country: US (occurrence: US)
  Receive Date: 20170705
  Receipt Date: 20170712
  Transmission Date: 20171127
  Serious: No
  Sender: FDA-Public Use
  Company Number: US-TEVA-783283ACC

PATIENT
  Age: 16 Year
  Sex: Female
  Weight: 54.48 kg

DRUGS (1)
  1. PLAN B ONE-STEP [Suspect]
     Active Substance: LEVONORGESTREL
     Indication: POST COITAL CONTRACEPTION
     Dates: start: 20170621, end: 20170621

REACTIONS (7)
  - Back pain [Unknown]
  - Dysmenorrhoea [Unknown]
  - Intentional product misuse [Unknown]
  - Headache [Recovering/Resolving]
  - Hunger [Unknown]
  - Menstruation irregular [Not Recovered/Not Resolved]
  - Prescription drug used without a prescription [Unknown]

NARRATIVE: CASE EVENT DATE: 20170627
